FAERS Safety Report 6916226-9 (Version None)
Quarter: 2010Q3

REPORT INFORMATION
  Report Type: 
  Country: None (occurrence: None)
  Receive Date: 20100810
  Receipt Date: 20100805
  Transmission Date: 20110219
  Serious: Yes (Other)
  Sender: FDA-Public Use
  Company Number: CA-ALLERGAN-1010238US

PATIENT
  Age: 40 Year
  Sex: Female

DRUGS (2)
  1. BOTOX [Suspect]
     Indication: PRODUCT USED FOR UNKNOWN INDICATION
     Dosage: 550 UNITS, SINGLE
     Route: 030
  2. ORAL CONTRACEPTIVE NOS [Concomitant]

REACTIONS (2)
  - MUSCULAR WEAKNESS [None]
  - THERAPEUTIC AGENT TOXICITY [None]
